FAERS Safety Report 13036467 (Version 1)
Quarter: 2016Q4

REPORT INFORMATION
  Report Type: Report from Study
  Country: US (occurrence: US)
  Receive Date: 20161216
  Receipt Date: 20161216
  Transmission Date: 20170207
  Serious: Yes (Other)
  Sender: FDA-Public Use
  Company Number: US-ALEXION PHARMACEUTICALS INC-A201609769

PATIENT
  Age: 57 Year
  Sex: Female
  Weight: 125 kg

DRUGS (1)
  1. SOLIRIS [Suspect]
     Active Substance: ECULIZUMAB
     Indication: PAROXYSMAL NOCTURNAL HAEMOGLOBINURIA
     Dosage: 900 MG, UNK
     Route: 042
     Dates: start: 20160524

REACTIONS (6)
  - Abdominal discomfort [Unknown]
  - Back pain [Unknown]
  - Polyuria [Unknown]
  - Anxiety [Recovered/Resolved]
  - Constipation [Unknown]
  - Pancytopenia [Unknown]

NARRATIVE: CASE EVENT DATE: 20160706
